FAERS Safety Report 12368498 (Version 1)
Quarter: 2016Q2

REPORT INFORMATION
  Report Type: Spontaneous
  Country: US (occurrence: US)
  Receive Date: 20160513
  Receipt Date: 20160513
  Transmission Date: 20160815
  Serious: Yes (Other)
  Sender: FDA-Public Use
  Company Number: US-PFIZER INC-2016249599

PATIENT
  Age: 47 Year
  Sex: Male
  Weight: 95.25 kg

DRUGS (1)
  1. VIAGRA [Suspect]
     Active Substance: SILDENAFIL CITRATE
     Dosage: 1 DF, DAILY
     Route: 048
     Dates: start: 20160105

REACTIONS (2)
  - Erection increased [Not Recovered/Not Resolved]
  - Ejaculation disorder [Unknown]
